FAERS Safety Report 5829098-0 (Version None)
Quarter: 2008Q3

REPORT INFORMATION
  Report Type: 
  Country: None (occurrence: None)
  Receive Date: 20080731
  Receipt Date: 20080722
  Transmission Date: 20090109
  Serious: Yes (Other)
  Sender: FDA-Public Use
  Company Number: JP-SANOFI-SYNTHELABO-F01200801107

PATIENT
  Sex: Female
  Weight: 49.4 kg

DRUGS (12)
  1. FELBINAC [Concomitant]
     Dosage: AS APPROPRIATE
     Route: 065
     Dates: start: 20060907, end: 20060919
  2. FELNABION [Concomitant]
     Dosage: AS APPROPRIATE
     Route: 065
     Dates: start: 20070220
  3. NITROPEN [Concomitant]
     Indication: ANGINA PECTORIS
     Dosage: 1 TABLETS WHEN CHEST PAIN APPEARS
     Route: 048
     Dates: start: 20070109, end: 20070226
  4. SANCOBA [Concomitant]
     Dosage: UNK
     Route: 047
     Dates: start: 20061114
  5. KARY UNI [Concomitant]
     Dosage: UNK
     Route: 047
     Dates: start: 20061017
  6. XALATAN [Concomitant]
     Dosage: UNK
     Route: 047
     Dates: start: 20061114
  7. MOHRUS TAPE [Concomitant]
     Dosage: UNK
     Dates: start: 20060905
  8. PARIET [Concomitant]
     Dosage: 10 MG
     Route: 048
     Dates: start: 20060823
  9. ONEALFA [Concomitant]
     Route: 048
     Dates: start: 20060825
  10. LIPITOR [Concomitant]
     Indication: HYPERLIPIDAEMIA
     Dosage: 5 MG
     Route: 048
     Dates: start: 20060907
  11. CLOPIDOGREL [Suspect]
     Indication: CEREBRAL ISCHAEMIA
     Route: 048
     Dates: start: 20060904
  12. NORVASC [Concomitant]
     Indication: HYPERTENSION
     Dosage: 2.5 MG
     Route: 048
     Dates: start: 20060831

REACTIONS (1)
  - DIABETES MELLITUS [None]
